FAERS Safety Report 10261723 (Version 1)
Quarter: 2014Q2

REPORT INFORMATION
  Report Type: Spontaneous
  Country: DK (occurrence: FR)
  Receive Date: 20140626
  Receipt Date: 20140626
  Transmission Date: 20141212
  Serious: Yes (Hospitalization)
  Sender: FDA-Public Use
  Company Number: FR-FRI-1000068490

PATIENT
  Age: 52 Year
  Sex: Female

DRUGS (8)
  1. ESCITALOPRAM [Suspect]
     Route: 048
     Dates: end: 20140606
  2. PARACETAMOL [Suspect]
     Dosage: 3 GRAMS
     Route: 048
     Dates: end: 20140606
  3. SPASFON [Concomitant]
  4. ALPRAZOLAM [Concomitant]
  5. FENTANYL [Concomitant]
  6. SERETIDE [Concomitant]
  7. SPIRIVA [Concomitant]
  8. LIDOCAINE [Concomitant]

REACTIONS (1)
  - Neutropenia [Recovered/Resolved]
